FAERS Safety Report 18678669 (Version 1)
Quarter: 2020Q4

REPORT INFORMATION
  Report Type: Spontaneous
  Country: US (occurrence: US)
  Receive Date: 20201229
  Receipt Date: 20201229
  Transmission Date: 20210114
  Serious: No
  Sender: FDA-Public Use
  Company Number: US-AMGEN-USASP2020209179

PATIENT

DRUGS (1)
  1. APREMILAST [Suspect]
     Active Substance: APREMILAST
     Indication: SEBORRHOEIC DERMATITIS
     Dosage: 30 MILLIGRAM, BID (STANDARD 5-DAY TITRATION)
     Route: 048

REACTIONS (3)
  - Off label use [Unknown]
  - Nausea [Unknown]
  - Therapeutic response unexpected [Unknown]
